FAERS Safety Report 18538863 (Version 2)
Quarter: 2022Q2

REPORT INFORMATION
  Report Type: Spontaneous
  Country: GB (occurrence: GB)
  Receive Date: 20201123
  Receipt Date: 20220613
  Transmission Date: 20220721
  Serious: No
  Sender: FDA-Public Use
  Company Number: GB-AMGEN-GBRSP2020187068

PATIENT
  Age: 25 Year
  Sex: Female
  Weight: 67 kg

DRUGS (4)
  1. ADALIMUMAB [Suspect]
     Active Substance: ADALIMUMAB
     Indication: Psoriasis
     Dosage: 40 MILLIGRAM, Q2WK
     Route: 065
     Dates: start: 20190405
  2. BETNOVATE [Concomitant]
     Active Substance: BETAMETHASONE
     Dosage: UNK
     Dates: start: 20190412
  3. MIRTAZAPINE [Concomitant]
     Active Substance: MIRTAZAPINE
     Dosage: UNK
     Dates: start: 20191112, end: 20200309
  4. DESOGESTREL [Concomitant]
     Active Substance: DESOGESTREL
     Dosage: UNK
     Dates: start: 20200120

REACTIONS (1)
  - SARS-CoV-2 antibody test positive [Recovered/Resolved]

NARRATIVE: CASE EVENT DATE: 20200702
